FAERS Safety Report 9922629 (Version 1)
Quarter: 2014Q1

REPORT INFORMATION
  Report Type: Spontaneous
  Country: US (occurrence: US)
  Receive Date: 20140225
  Receipt Date: 20140225
  Transmission Date: 20141002
  Serious: No
  Sender: FDA-Public Use
  Company Number: US-TEVA-464788USA

PATIENT
  Sex: Female

DRUGS (2)
  1. PROAIR HFA [Suspect]
  2. EYE DROPS [Concomitant]
     Indication: DRY EYE

REACTIONS (3)
  - Hypersensitivity [Unknown]
  - Dry eye [Unknown]
  - Asthma [Unknown]
